FAERS Safety Report 4441506-9 (Version None)
Quarter: 2004Q3

REPORT INFORMATION
  Report Type: 
  Country: None (occurrence: None)
  Receive Date: 20040728
  Receipt Date: 20040407
  Transmission Date: 20050211
  Serious: No
  Sender: FDA-Public Use
  Company Number: USA040464378

PATIENT
  Sex: Female

DRUGS (9)
  1. STRATTERA [Suspect]
     Dosage: 80 MG DAY
     Dates: start: 20040329, end: 20040406
  2. HUMULIN 70/30 [Concomitant]
  3. STARLIX [Concomitant]
  4. LEXAPRO [Concomitant]
  5. WELLBUTRIN (BUPRION HYDROCHLORIDE) [Concomitant]
  6. PRINZIDE [Concomitant]
  7. NEXIUM [Concomitant]
  8. SYNTHROID [Concomitant]
  9. MACROBID [Concomitant]

REACTIONS (1)
  - DYSGEUSIA [None]
